FAERS Safety Report 8319677-3 (Version None)
Quarter: 2012Q1

REPORT INFORMATION
  Report Type: 
  Country: None (occurrence: None)
  Receive Date: 20120315
  Receipt Date: 20110125
  Transmission Date: 20120608
  Serious: No
  Sender: FDA-Public Use
  Company Number: PHHY2011US06548

PATIENT
  Age: 61 Year
  Sex: Female
  Weight: 86.2 kg

DRUGS (11)
  1. GILENYA [Suspect]
     Dosage: 0.5 MG, QD, ORAL
     Route: 048
  2. GABAPENTIN [Concomitant]
  3. LEXAPRO [Concomitant]
  4. AMLODIPINE [Concomitant]
  5. BACLOFEN [Concomitant]
  6. BENADRYL (AMMONIUM CHLORIDE, DIPHENHYDRAMINE HYDROCHLORIDE, MENTHOL, S [Concomitant]
  7. ACETAMINOPHEN [Concomitant]
  8. TRAZODONE HCL [Concomitant]
  9. BISOPROLOL FUMARATE [Concomitant]
  10. HYDROCODONE BITARTRATE [Concomitant]
  11. XANAX [Concomitant]

REACTIONS (3)
  - FEELING OF BODY TEMPERATURE CHANGE [None]
  - MYALGIA [None]
  - ASTHENIA [None]
